FAERS Safety Report 15727924 (Version 3)
Quarter: 2020Q4

REPORT INFORMATION
  Report Type: Spontaneous
  Country: AU (occurrence: AU)
  Receive Date: 20181217
  Receipt Date: 20201125
  Transmission Date: 20210113
  Serious: Yes (Life-Threatening, Hospitalization, Other)
  Sender: FDA-Public Use
  Company Number: AU-GENERIC HEALTH PTY. LTD.-2018-08648

PATIENT
  Age: 55 Year
  Sex: Female
  Weight: 80 kg

DRUGS (7)
  1. IBUPROFEN. [Suspect]
     Active Substance: IBUPROFEN
     Indication: PRODUCT USED FOR UNKNOWN INDICATION
     Dosage: 24 G, UNK
     Route: 048
  2. INDAPAMIDE. [Suspect]
     Active Substance: INDAPAMIDE
     Indication: PRODUCT USED FOR UNKNOWN INDICATION
     Dosage: 37.5 MG, UNK
     Route: 048
  3. SERTRALINE [Suspect]
     Active Substance: SERTRALINE HYDROCHLORIDE
     Indication: PRODUCT USED FOR UNKNOWN INDICATION
     Dosage: 20 G, UNK
     Route: 048
  4. METFORMIN HYDROCHLORIDE EXTENDED RELEASE TABLET [Suspect]
     Active Substance: METFORMIN HYDROCHLORIDE
     Indication: PRODUCT USED FOR UNKNOWN INDICATION
     Dosage: 132 G, UNK
     Route: 048
  5. ROSUVASTATIN. [Suspect]
     Active Substance: ROSUVASTATIN
     Indication: PRODUCT USED FOR UNKNOWN INDICATION
     Dosage: 150 MG, UNK
     Route: 048
  6. LINAGLIPTIN [Suspect]
     Active Substance: LINAGLIPTIN
     Indication: PRODUCT USED FOR UNKNOWN INDICATION
     Dosage: 290 MG, UNK
     Route: 048
  7. PERINDOPRIL [Suspect]
     Active Substance: PERINDOPRIL
     Indication: PRODUCT USED FOR UNKNOWN INDICATION
     Dosage: 120 MG, UNK
     Route: 048

REACTIONS (4)
  - Shock [Recovered/Resolved]
  - Hyperlactacidaemia [Recovered/Resolved]
  - Metabolic acidosis [Recovered/Resolved]
  - Intentional overdose [Unknown]
